FAERS Safety Report 9033105 (Version 2)
Quarter: 2013Q2

REPORT INFORMATION
  Report Type: Spontaneous
  Country: ZA (occurrence: ZA)
  Receive Date: 20130128
  Receipt Date: 20130410
  Transmission Date: 20140414
  Serious: Yes (Other)
  Sender: FDA-Public Use
  Company Number: ZA-PFIZER INC-2013027275

PATIENT
  Age: 51 Year
  Sex: Male
  Weight: 68.5 kg

DRUGS (3)
  1. SUNITINIB MALATE [Suspect]
     Indication: METASTATIC RENAL CELL CARCINOMA
     Dosage: 50 MG, 1X/DAY
     Route: 048
     Dates: start: 20120820
  2. SUNITINIB MALATE [Suspect]
     Dosage: 37.5 MG, 1X/DAY
     Route: 048
  3. SUNITINIB MALATE [Suspect]
     Dosage: 25 MG, 2X/DAY
     Route: 048
     Dates: end: 20130218

REACTIONS (2)
  - Angina pectoris [Unknown]
  - Ejection fraction decreased [Recovering/Resolving]
